FAERS Safety Report 5343528-2 (Version None)
Quarter: 2007Q2

REPORT INFORMATION
  Report Type: 
  Country: None (occurrence: None)
  Receive Date: 20070604
  Receipt Date: 20070526
  Transmission Date: 20071010
  Serious: Yes (Disabling)
  Sender: FDA-Public Use
  Company Number: PHRM2007FR01542

PATIENT
  Age: 73 Year
  Sex: Female

DRUGS (4)
  1. COTAREG [Suspect]
     Indication: HYPERTENSION
     Dosage: 1 DF, QD
     Route: 048
     Dates: start: 20070525
  2. ATENOLOL [Concomitant]
  3. SIMVASTATIN [Concomitant]
  4. DESLORATADINE [Concomitant]

REACTIONS (5)
  - AMNESIA [None]
  - DIZZINESS [None]
  - IMPAIRED DRIVING ABILITY [None]
  - MALAISE [None]
  - PRESYNCOPE [None]
